FAERS Safety Report 18725754 (Version 3)
Quarter: 2021Q1

REPORT INFORMATION
  Report Type: Spontaneous
  Country: US (occurrence: US)
  Receive Date: 20210111
  Receipt Date: 20210115
  Transmission Date: 20210419
  Serious: Yes (Life-Threatening, Hospitalization, Other)
  Sender: FDA-Public Use
  Company Number: US-ABBVIE-21K-163-3719169-00

PATIENT
  Age: 53 Year
  Sex: Male

DRUGS (3)
  1. VALPROATE SODIUM. [Suspect]
     Active Substance: VALPROATE SODIUM
     Indication: PRODUCT USED FOR UNKNOWN INDICATION
     Dosage: 1X PILLS
     Route: 065
  2. AMLODIPINE [Suspect]
     Active Substance: AMLODIPINE BESYLATE
     Indication: PRODUCT USED FOR UNKNOWN INDICATION
     Dosage: 1X (15 PILLS)
     Route: 065
  3. ACETYLSALICYLIC ACID [Suspect]
     Active Substance: ASPIRIN
     Indication: PRODUCT USED FOR UNKNOWN INDICATION
     Dosage: 30 DOSAGE FORM 1X PILLS
     Route: 065

REACTIONS (10)
  - Acidosis [Recovering/Resolving]
  - Hypotension [Recovering/Resolving]
  - Altered state of consciousness [Recovering/Resolving]
  - Pulmonary oedema [Recovering/Resolving]
  - Oliguria [Recovering/Resolving]
  - Intentional overdose [Recovering/Resolving]
  - Fluid overload [Recovering/Resolving]
  - Hypoxia [Recovering/Resolving]
  - Nephropathy toxic [Recovering/Resolving]
  - Distributive shock [Recovering/Resolving]
